FAERS Safety Report 18459550 (Version 1)
Quarter: 2020Q4

REPORT INFORMATION
  Report Type: Spontaneous
  Country: US (occurrence: US)
  Receive Date: 20201103
  Receipt Date: 20201103
  Transmission Date: 20210114
  Serious: Yes (Other)
  Sender: FDA-Public Use
  Company Number: US-PFIZER INC-2020418808

PATIENT
  Age: 63 Year
  Sex: Female
  Weight: 40.82 kg

DRUGS (1)
  1. VFEND [Suspect]
     Active Substance: VORICONAZOLE
     Indication: ASPERGILLUS INFECTION
     Dosage: 200 MG, 3X/DAY
     Route: 048

REACTIONS (8)
  - Nausea [Unknown]
  - Confusional state [Unknown]
  - Hallucination [Unknown]
  - Weight decreased [Unknown]
  - Dysarthria [Unknown]
  - Alopecia [Unknown]
  - Constipation [Unknown]
  - Off label use [Unknown]
